FAERS Safety Report 7729276-X (Version None)
Quarter: 2011Q3

REPORT INFORMATION
  Report Type: 
  Country: None (occurrence: None)
  Receive Date: 20110906
  Receipt Date: 20110902
  Transmission Date: 20111222
  Serious: No
  Sender: FDA-Public Use
  Company Number: US-PFIZER INC-2011205911

PATIENT
  Age: 65 Year
  Sex: Male

DRUGS (3)
  1. GEODON [Suspect]
     Dosage: 20 MG, 2X/DAY
     Route: 048
  2. LITHIUM [Concomitant]
     Dosage: UNK
  3. GEODON [Suspect]
     Dosage: 20 MG, 1X/DAY
     Route: 048

REACTIONS (1)
  - HYPERHIDROSIS [None]
